FAERS Safety Report 5259578-0 (Version None)
Quarter: 2007Q1

REPORT INFORMATION
  Report Type: 
  Country: None (occurrence: None)
  Receive Date: 20070309
  Receipt Date: 20070226
  Transmission Date: 20070707
  Serious: Yes (Other)
  Sender: FDA-Public Use
  Company Number: US-RB-3388-2006

PATIENT
  Sex: Female
  Weight: 63.9 kg

DRUGS (12)
  1. SUBUTEX [Suspect]
     Route: 060
  2. SUBOXONE [Suspect]
     Route: 060
     Dates: start: 20060524
  3. SUBOXONE [Suspect]
     Route: 060
     Dates: start: 20060330, end: 20060523
  4. SUBOXONE [Suspect]
     Dosage: CUMULATIVE DOSE:  460  MG/M2
     Route: 060
     Dates: start: 20060306, end: 20060329
  5. SUBOXONE [Suspect]
     Dosage: CUMULATIVE DOSE:  48  MG
     Route: 060
     Dates: start: 20060303, end: 20060305
  6. SUBOXONE [Suspect]
     Dosage: CUMULATIVE DOSE:  40  MG
     Route: 060
     Dates: start: 20060301, end: 20060302
  7. SUBOXONE [Suspect]
     Dosage: CUMULATIVE DOSE:  48  MG
     Route: 060
     Dates: start: 20060227, end: 20060228
  8. SUBOXONE [Suspect]
     Dosage: CUMULATIVE DOSE:  84  MG
     Route: 060
     Dates: start: 20060223, end: 20060226
  9. SUBOXONE [Suspect]
     Dosage: CUMULATIVE DOSE:  168  MG
     Route: 060
     Dates: start: 20060216, end: 20060222
  10. SUBOXONE [Suspect]
     Dosage: CUMULATIVE DOSE:  32  MG
     Route: 060
     Dates: start: 20060214, end: 20060215
  11. SUBOXONE [Suspect]
     Route: 060
     Dates: start: 20060213, end: 20060213
  12. LEXAPRO [Concomitant]
     Indication: DEPRESSION
     Dosage: PATIENT ON FOR ONE YEAR AND CONTINUES
     Route: 048

REACTIONS (5)
  - ABORTION SPONTANEOUS [None]
  - DRUG DEPENDENCE [None]
  - DRUG WITHDRAWAL SYNDROME [None]
  - HEADACHE [None]
  - PREGNANCY [None]
